FAERS Safety Report 8020357-2 (Version None)
Quarter: 2012Q1

REPORT INFORMATION
  Report Type: 
  Country: None (occurrence: None)
  Receive Date: 20120103
  Receipt Date: 20111220
  Transmission Date: 20120608
  Serious: Yes (Hospitalization, Other)
  Sender: FDA-Public Use
  Company Number: JP-PFIZER INC-2011308078

PATIENT
  Age: 37 Year
  Sex: Female
  Weight: 54.4 kg

DRUGS (10)
  1. LEVOTOMIN [Suspect]
     Dosage: UNK
  2. RISPERDAL [Suspect]
     Dosage: UNK
  3. ROHYPNOL [Suspect]
     Dosage: UNK
  4. ARTANE [Suspect]
     Indication: SCHIZOPHRENIA
     Dosage: UNK
     Route: 048
  5. LENDORMIN [Suspect]
     Dosage: UNK
  6. NITRAZEPAM [Suspect]
     Dosage: UNK
  7. LEXOTAN [Suspect]
     Dosage: UNK
  8. RHYTHMY [Suspect]
     Dosage: UNK
  9. DEPAS [Suspect]
     Dosage: UNK
  10. PHENOBARBITAL TAB [Suspect]
     Dosage: UNK

REACTIONS (5)
  - LOSS OF CONSCIOUSNESS [None]
  - DYSKINESIA [None]
  - WHITE BLOOD CELL COUNT DECREASED [None]
  - BLOOD PRESSURE DECREASED [None]
  - SEPTIC SHOCK [None]
